FAERS Safety Report 6169917-4 (Version None)
Quarter: 2009Q2

REPORT INFORMATION
  Report Type: 
  Country: None (occurrence: None)
  Receive Date: 20090428
  Receipt Date: 20080519
  Transmission Date: 20091009
  Serious: No
  Sender: FDA-Public Use
  Company Number: A0723452A

PATIENT
  Age: 57 Year
  Sex: Female

DRUGS (6)
  1. SEREVENT [Suspect]
     Indication: ASTHMA
     Dosage: 1PUFF TWICE PER DAY
     Route: 055
     Dates: start: 20080414
  2. ALBUTEROL [Concomitant]
  3. CALCIUM [Concomitant]
  4. VITAMINS [Concomitant]
  5. GINSENG [Concomitant]
  6. GINGKO [Concomitant]

REACTIONS (2)
  - DRUG INEFFECTIVE [None]
  - PRODUCT QUALITY ISSUE [None]
